FAERS Safety Report 21713780 (Version 1)
Quarter: 2022Q4

REPORT INFORMATION
  Report Type: Spontaneous
  Country: FR (occurrence: FR)
  Receive Date: 20221212
  Receipt Date: 20221212
  Transmission Date: 20230113
  Serious: Yes (Hospitalization)
  Sender: FDA-Public Use
  Company Number: None

PATIENT
  Age: 81 Year
  Sex: Female

DRUGS (2)
  1. CARBOPLATIN [Suspect]
     Active Substance: CARBOPLATIN
     Indication: Adenocarcinoma metastatic
     Dosage: STRENGTH: 10 MG/ ML, D1D8D15, 3 WEEKS OUT OF 4, IN COMBINATION WITH PACLITAXEL
     Dates: start: 20220701, end: 20221020
  2. PACLITAXEL [Concomitant]
     Active Substance: PACLITAXEL
     Indication: Adenocarcinoma metastatic
     Dosage: D1D8D15, 3 WEEKS OUT OF 4, IN COMBINATION WITH CARBOPLATIN
     Dates: start: 20220701

REACTIONS (1)
  - Syncope [Recovered/Resolved]

NARRATIVE: CASE EVENT DATE: 20220923
